FAERS Safety Report 6114842-8 (Version None)
Quarter: 2009Q1

REPORT INFORMATION
  Report Type: 
  Country: None (occurrence: None)
  Receive Date: 20090311
  Receipt Date: 20080514
  Transmission Date: 20090719
  Serious: Yes (Hospitalization)
  Sender: FDA-Public Use
  Company Number: US200805002993

PATIENT
  Age: 55 Year
  Sex: Female

DRUGS (10)
  1. GEMZAR [Suspect]
     Indication: PANCREATIC CARCINOMA METASTATIC
     Dosage: 1000 MG/M2,DAYS 1,8
  2. CYMBALTA [Concomitant]
  3. HUMALOG [Concomitant]
  4. OXYCODONE HCL [Concomitant]
  5. WELLBUTRIN [Concomitant]
  6. PANGESTYME (AMYLASE, LIPASE, PROTEASE) [Concomitant]
  7. TYLENOL/SCH/ (PARACETAMOL) [Concomitant]
  8. VICODIN [Concomitant]
  9. ATIVAN [Concomitant]
  10. AMBIEN [Concomitant]

REACTIONS (5)
  - BLOOD BILIRUBIN [None]
  - DEHYDRATION [None]
  - DISORIENTATION [None]
  - HEADACHE [None]
  - VOMITING [None]
